FAERS Safety Report 8928722 (Version 1)
Quarter: 2012Q4

REPORT INFORMATION
  Report Type: 
  Country: US (occurrence: US)
  Receive Date: 20121128
  Receipt Date: 20121128
  Transmission Date: 20130627
  Serious: No
  Sender: FDA-Public Use
  Company Number: US-PFIZER INC-2012297857

PATIENT
  Age: 39 Year
  Sex: Male

DRUGS (2)
  1. PRISTIQ [Suspect]
     Dosage: 50 mg, daily
     Route: 048
     Dates: start: 20121120
  2. ZALEPLON [Concomitant]
     Indication: INSOMNIA
     Dosage: 10 mg, daily

REACTIONS (2)
  - Diarrhoea [Not Recovered/Not Resolved]
  - Medication residue [Not Recovered/Not Resolved]
